FAERS Safety Report 13492538 (Version 1)
Quarter: 2017Q2

REPORT INFORMATION
  Report Type: Spontaneous
  Country: US (occurrence: US)
  Receive Date: 20170427
  Receipt Date: 20170427
  Transmission Date: 20170830
  Serious: No
  Sender: FDA-Public Use
  Company Number: US-UPSHER-SMITH LABORATORIES, INC.-16001398

PATIENT
  Age: 55 Year
  Sex: Male

DRUGS (3)
  1. VANCOMYCIN [Concomitant]
     Active Substance: VANCOMYCIN
     Indication: CLOSTRIDIUM DIFFICILE INFECTION
     Dosage: UNK, UNK
     Route: 048
     Dates: start: 201606
  2. DICYCLOMINE [Concomitant]
     Active Substance: DICYCLOMINE HYDROCHLORIDE
     Indication: ABDOMINAL PAIN UPPER
     Dosage: UNK, UNK
     Route: 048
     Dates: start: 201606
  3. PREVALITE [Suspect]
     Active Substance: CHOLESTYRAMINE
     Indication: CLOSTRIDIUM DIFFICILE COLITIS
     Dosage: 4 G, BID
     Route: 048
     Dates: start: 20160707, end: 20160713

REACTIONS (2)
  - Throat irritation [Recovered/Resolved]
  - Dysphonia [Recovering/Resolving]

NARRATIVE: CASE EVENT DATE: 20160707
